FAERS Safety Report 26209446 (Version 1)
Quarter: 2025Q4

REPORT INFORMATION
  Report Type: Spontaneous
  Country: RU (occurrence: RU)
  Receive Date: 20251229
  Receipt Date: 20251229
  Transmission Date: 20260117
  Serious: Yes (Hospitalization, Other)
  Sender: GLAXOSMITHKLINE
  Company Number: RU-GSK-RU2025EME165730

PATIENT
  Age: 19 Year
  Sex: Female
  Weight: 75 kg

DRUGS (1)
  1. LAMICTAL [Suspect]
     Active Substance: LAMOTRIGINE
     Indication: Product used for unknown indication
     Dosage: 600 MG, QD

REACTIONS (4)
  - Psychomotor retardation [Unknown]
  - Lethargy [Unknown]
  - Somnolence [Unknown]
  - Intentional product use issue [Unknown]

NARRATIVE: CASE EVENT DATE: 20250225
